FAERS Safety Report 10437472 (Version 1)
Quarter: 2014Q3

REPORT INFORMATION
  Report Type: Spontaneous
  Country: US (occurrence: None)
  Receive Date: 20140905
  Receipt Date: 20140905
  Transmission Date: 20150326
  Serious: Yes (Disabling)
  Sender: FDA-Public Use
  Company Number: None

PATIENT
  Sex: Female

DRUGS (1)
  1. REMBRANDT 2 HOUR WHITENING KIT [Suspect]
     Active Substance: GLYCERIN\HYDROGEN PEROXIDE
     Indication: DENTAL CARE
     Dosage: AS DIRECTED, DENTAL
     Route: 004

REACTIONS (2)
  - Tooth disorder [None]
  - Tooth fracture [None]

NARRATIVE: CASE EVENT DATE: 20140808
